FAERS Safety Report 10191854 (Version 1)
Quarter: 2014Q2

REPORT INFORMATION
  Report Type: Spontaneous
  Country: US (occurrence: US)
  Receive Date: 20140523
  Receipt Date: 20140523
  Transmission Date: 20141212
  Serious: No
  Sender: FDA-Public Use
  Company Number: US-AMGEN INC.-USASP2014031505

PATIENT
  Age: 85 Year
  Sex: Female

DRUGS (6)
  1. PROLIA [Suspect]
     Indication: OSTEOPOROSIS
     Route: 065
  2. LOSARTAN [Concomitant]
  3. METOPROLOL [Concomitant]
  4. VITAMIN B [Concomitant]
  5. BABY ASPIRIN [Concomitant]
  6. WARFARIN [Concomitant]

REACTIONS (3)
  - Muscle spasms [Unknown]
  - Paraesthesia [Unknown]
  - Abdominal pain upper [Unknown]
